FAERS Safety Report 8858718 (Version 2)
Quarter: 2012Q4

REPORT INFORMATION
  Report Type: 
  Country: FR (occurrence: FR)
  Receive Date: 20121024
  Receipt Date: 20121031
  Transmission Date: 20130627
  Serious: Yes (Hospitalization)
  Sender: FDA-Public Use
  Company Number: FR-009507513-1210FRA006442

PATIENT
  Age: 30 Year
  Sex: Female

DRUGS (8)
  1. CLARITYNE [Suspect]
     Indication: OROPHARYNGEAL PAIN
     Dosage: UNK
     Route: 048
     Dates: start: 20110702
  2. CLARITYNE [Suspect]
     Indication: ODYNOPHAGIA
  3. ZECLAR [Suspect]
     Indication: OROPHARYNGEAL PAIN
     Dosage: 500 mg, bid
     Route: 048
     Dates: start: 20110702, end: 20110707
  4. ZECLAR [Suspect]
     Indication: ODYNOPHAGIA
  5. SOLU-MEDROL [Suspect]
     Indication: PRODUCT USED FOR UNKNOWN INDICATION
     Dosage: 1 DF, Once
     Route: 030
     Dates: start: 20110703, end: 20110703
  6. SOLUPRED [Suspect]
     Indication: PRODUCT USED FOR UNKNOWN INDICATION
     Dosage: UNK
     Route: 048
     Dates: start: 20110704
  7. MONURIL [Suspect]
     Indication: CYSTITIS
     Dosage: 3 g, Once
     Route: 048
     Dates: start: 20110704, end: 20110704
  8. DAFALGAN CODEINE [Suspect]
     Indication: PYREXIA
     Dosage: UNK
     Route: 048
     Dates: start: 20110704

REACTIONS (2)
  - Lip oedema [Recovered/Resolved]
  - Rash [Recovered/Resolved]
